FAERS Safety Report 24900166 (Version 1)
Quarter: 2025Q1

REPORT INFORMATION
  Report Type: Spontaneous
  Country: US (occurrence: US)
  Receive Date: 20250129
  Receipt Date: 20250129
  Transmission Date: 20250409
  Serious: No
  Sender: MERCK
  Company Number: US-009507513-2501USA003156

PATIENT
  Sex: Male
  Weight: 137 kg

DRUGS (20)
  1. WINREVAIR [Suspect]
     Active Substance: SOTATERCEPT-CSRK
     Indication: Pulmonary arterial hypertension
     Dates: start: 2024
  2. TREPROSTINIL [Suspect]
     Active Substance: TREPROSTINIL
     Indication: Pulmonary arterial hypertension
     Dosage: 5 MILLIGRAM, Q8H
     Route: 048
     Dates: start: 20240530
  3. ORENITRAM [Suspect]
     Active Substance: TREPROSTINIL
     Indication: Pulmonary arterial hypertension
     Route: 048
  4. ADEMPAS [Concomitant]
     Active Substance: RIOCIGUAT
  5. FUROSEMIDE [Concomitant]
     Active Substance: FUROSEMIDE
  6. VITAMIN B-1 [THIAMINE MONONITRATE] [Concomitant]
  7. SPIRONOLACTONE [Concomitant]
     Active Substance: SPIRONOLACTONE
  8. MIRTAZAPINE [Concomitant]
     Active Substance: MIRTAZAPINE
  9. POTASSIUM CHLORIDE [Concomitant]
     Active Substance: POTASSIUM CHLORIDE
  10. VITAMIN D3 [Concomitant]
     Active Substance: CHOLECALCIFEROL
  11. SERTRALINE HYDROCHLORIDE [Concomitant]
     Active Substance: SERTRALINE HYDROCHLORIDE
  12. JARDIANCE [Concomitant]
     Active Substance: EMPAGLIFLOZIN
  13. PANTOPRAZOLE SODIUM [Concomitant]
     Active Substance: PANTOPRAZOLE SODIUM
  14. VITAMINS [Concomitant]
     Active Substance: VITAMINS
  15. ATORVASTATIN CALCIUM [Concomitant]
     Active Substance: ATORVASTATIN CALCIUM
  16. VITAMIN B12 [Concomitant]
     Active Substance: CYANOCOBALAMIN
  17. OXYGEN [Concomitant]
     Active Substance: OXYGEN
  18. DIGOXIN [Concomitant]
     Active Substance: DIGOXIN
  19. ASPIRIN [Concomitant]
     Active Substance: ASPIRIN
  20. FERROUS SULFATE [Concomitant]
     Active Substance: FERROUS SULFATE

REACTIONS (1)
  - Injection site pruritus [Unknown]

NARRATIVE: CASE EVENT DATE: 20240101
